FAERS Safety Report 5520872-7 (Version None)
Quarter: 2007Q4

REPORT INFORMATION
  Report Type: 
  Country: None (occurrence: None)
  Receive Date: 20071119
  Receipt Date: 20071113
  Transmission Date: 20080405
  Serious: Yes (Other)
  Sender: FDA-Public Use
  Company Number: B0494323A

PATIENT
  Age: 46 Year
  Sex: Male

DRUGS (5)
  1. ZIAGEN [Suspect]
     Indication: HIV INFECTION
     Dosage: 600MG PER DAY
     Route: 065
  2. ATENOLOL [Concomitant]
     Indication: HYPERTENSION
     Dosage: 100MG PER DAY
     Dates: start: 19940101
  3. VIRAMUNE [Concomitant]
     Indication: HIV INFECTION
     Dosage: 400MG PER DAY
  4. VIDEX [Concomitant]
     Indication: HIV INFECTION
     Dosage: 400MG PER DAY
  5. METFORMIN HYDROCHLORIDE [Concomitant]
     Indication: DIABETES MELLITUS
     Dosage: 1700MG PER DAY
     Dates: start: 19960101

REACTIONS (3)
  - ARTHRALGIA [None]
  - GAIT DISTURBANCE [None]
  - OSTEONECROSIS [None]
